FAERS Safety Report 10061251 (Version 2)
Quarter: 2014Q2

REPORT INFORMATION
  Report Type: Spontaneous
  Country: BE (occurrence: BE)
  Receive Date: 20140407
  Receipt Date: 20140521
  Transmission Date: 20141212
  Serious: Yes (Death, Hospitalization, Other)
  Sender: FDA-Public Use
  Company Number: BE-AMGEN-BELSP2014023092

PATIENT
  Age: 28 Year
  Sex: Female
  Weight: 57 kg

DRUGS (6)
  1. XGEVA [Suspect]
     Indication: METASTASES TO BONE
     Dosage: 120 MG, Q4WK
     Route: 058
     Dates: start: 20131122, end: 20140222
  2. CISPLATIN [Concomitant]
     Indication: ADENOCARCINOMA
     Dosage: 75 MG/M2, Q3WK
     Route: 042
     Dates: start: 201308, end: 201402
  3. ALIMTA [Concomitant]
     Indication: ADENOCARCINOMA
     Dosage: 500 MG/M2, Q3WK
     Route: 042
     Dates: start: 201308, end: 201402
  4. CALCIUM [Concomitant]
  5. VITAMIN D                          /00107901/ [Concomitant]
  6. STEOVIT D3 [Concomitant]

REACTIONS (7)
  - Haemorrhage [Fatal]
  - Hypoaesthesia [Recovered/Resolved]
  - Muscle twitching [Recovered/Resolved]
  - Paraesthesia [Recovered/Resolved]
  - Hypocalcaemia [Recovered/Resolved]
  - Hypoaesthesia oral [Recovered/Resolved]
  - Tetany [Recovered/Resolved]
